FAERS Safety Report 7967092-4 (Version None)
Quarter: 2011Q4

REPORT INFORMATION
  Report Type: 
  Country: None (occurrence: None)
  Receive Date: 20111209
  Receipt Date: 20111205
  Transmission Date: 20120403
  Serious: Yes (Life-Threatening, Other)
  Sender: FDA-Public Use
  Company Number: DE-PFIZER INC-2011288170

PATIENT
  Age: 61 Year
  Sex: Male

DRUGS (1)
  1. PETINUTIN [Suspect]
     Indication: EPILEPSY
     Dosage: 300 MG + 150 MG
     Dates: start: 19590101

REACTIONS (12)
  - SWOLLEN TONGUE [None]
  - GENERALISED OEDEMA [None]
  - RASH [None]
  - SKIN SWELLING [None]
  - GASTROOESOPHAGEAL REFLUX DISEASE [None]
  - DYSGEUSIA [None]
  - BRONCHIAL OEDEMA [None]
  - LIP SWELLING [None]
  - ENZYME ABNORMALITY [None]
  - DYSPNOEA [None]
  - OESOPHAGEAL PAIN [None]
  - SPEECH DISORDER [None]
